FAERS Safety Report 4500809-X (Version None)
Quarter: 2004Q4

REPORT INFORMATION
  Report Type: 
  Country: None (occurrence: None)
  Receive Date: 20041115
  Receipt Date: 20041022
  Transmission Date: 20050328
  Serious: Yes (Life-Threatening)
  Sender: FDA-Public Use
  Company Number: JP-MERCK-0410USA03916

PATIENT
  Age: 86 Year
  Sex: Male

DRUGS (10)
  1. PEPCID RPD [Suspect]
     Indication: PNEUMONIA ASPIRATION
     Route: 048
     Dates: start: 20041006, end: 20041016
  2. PEPCID [Suspect]
     Indication: PROPHYLAXIS AGAINST GASTROINTESTINAL ULCER
     Route: 042
     Dates: start: 20040904, end: 20041005
  3. BISOLVON [Suspect]
     Route: 042
     Dates: start: 20041006, end: 20041014
  4. GASMOTIN [Suspect]
     Route: 048
     Dates: start: 20041006, end: 20041014
  5. MEDICINALPRODUCT NOT SPECIFIED BY SENDER [Concomitant]
     Indication: PARENTERAL NUTRITION
     Route: 041
     Dates: start: 20040826, end: 20041007
  6. MEDICINALPRODUCT NOT SPECIFIED BY SENDER [Concomitant]
     Route: 042
     Dates: start: 20040905, end: 20041007
  7. MEDICINALPRODUCT NOT SPECIFIED BY SENDER [Concomitant]
     Route: 042
     Dates: start: 20040905, end: 20041007
  8. LASIX [Concomitant]
     Route: 042
     Dates: start: 20040822, end: 20040914
  9. MUCODYNE [Concomitant]
     Route: 048
     Dates: start: 20041006
  10. MEDICINALPRODUCT NOT SPECIFIED BY SENDER [Concomitant]
     Indication: NUTRITIONAL SUPPORT
     Route: 048
     Dates: start: 20041009

REACTIONS (1)
  - HYPOGLYCAEMIA [None]
